FAERS Safety Report 10904101 (Version 1)
Quarter: 2015Q1

REPORT INFORMATION
  Report Type: Spontaneous
  Country: US (occurrence: None)
  Receive Date: 20150303
  Receipt Date: 20150303
  Transmission Date: 20150721
  Serious: Yes (Other)
  Sender: FDA-Public Use
  Company Number: None

PATIENT
  Age: 31 Year
  Sex: Female
  Weight: 49.9 kg

DRUGS (10)
  1. TRAZODONE [Concomitant]
     Active Substance: TRAZODONE HYDROCHLORIDE
  2. LYSINE [Concomitant]
     Active Substance: LYSINE
  3. MULTI-VITAMIN [Concomitant]
     Active Substance: .ALPHA.-TOCOPHEROL ACETATE, DL-\ASCORBIC ACID\CYANOCOBALAMIN\FLUORIDE ION\FOLIC ACID\NIACIN\PYRIDOXINE\RIBOFLAVIN\THIAMINE\VITAMIN A\VITAMIN D
  4. XERESE [Suspect]
     Active Substance: ACYCLOVIR\HYDROCORTISONE
     Indication: ORAL HERPES
     Dosage: QUANTITY TO COVER AREA; 5X PER DAY/5 DAYS;
     Route: 061
     Dates: start: 20150227, end: 20150301
  5. VALTREX [Concomitant]
     Active Substance: VALACYCLOVIR HYDROCHLORIDE
  6. XERESE [Suspect]
     Active Substance: ACYCLOVIR\HYDROCORTISONE
     Indication: ULCER
     Dosage: QUANTITY TO COVER AREA; 5X PER DAY/5 DAYS;
     Route: 061
     Dates: start: 20150227, end: 20150301
  7. EPIPEN [Concomitant]
     Active Substance: EPINEPHRINE
  8. IBUPROFEN. [Concomitant]
     Active Substance: IBUPROFEN
  9. VITAMIN C CHEWABLE TABLETS [Concomitant]
  10. KLONAZEPAM [Concomitant]

REACTIONS (5)
  - Pain [None]
  - Skin haemorrhage [None]
  - Application site swelling [None]
  - Application site erythema [None]
  - Chapped lips [None]

NARRATIVE: CASE EVENT DATE: 20150301
